FAERS Safety Report 12197572 (Version 5)
Quarter: 2016Q2

REPORT INFORMATION
  Report Type: Spontaneous
  Country: US (occurrence: US)
  Receive Date: 20160322
  Receipt Date: 20160411
  Transmission Date: 20160815
  Serious: No
  Sender: FDA-Public Use
  Company Number: US-HORIZON-BUP-RAV-0040-2016

PATIENT
  Age: 21 Year
  Sex: Female

DRUGS (5)
  1. CITRULLINE [Concomitant]
     Active Substance: CITRULLINE
  2. RAVICTI [Suspect]
     Active Substance: GLYCEROL PHENYLBUTYRATE
     Indication: ORNITHINE TRANSCARBAMOYLASE DEFICIENCY
     Dosage: 2.5 ML TWICE DAILY AND 3 ML ONCE DAILY
     Dates: start: 20160313
  3. BUPHENYL [Suspect]
     Active Substance: SODIUM PHENYLBUTYRATE
     Indication: UREA CYCLE ENZYME DEFICIENCY
     Dosage: TWICE DAILY
     Dates: end: 20160312
  4. PROTEIN [Concomitant]
     Active Substance: PROTEIN
     Dosage: 30-40G A DAY
  5. CARNITINE [Concomitant]
     Active Substance: CARNITINE

REACTIONS (3)
  - Alopecia [Not Recovered/Not Resolved]
  - Dizziness [Recovered/Resolved]
  - Headache [Recovered/Resolved]

NARRATIVE: CASE EVENT DATE: 20160314
